FAERS Safety Report 13211498 (Version 1)
Quarter: 2017Q1

REPORT INFORMATION
  Report Type: Spontaneous
  Country: US (occurrence: US)
  Receive Date: 20170209
  Receipt Date: 20170209
  Transmission Date: 20170428
  Serious: No
  Sender: FDA-Public Use
  Company Number: US-ALLERGAN-1662990US

PATIENT
  Sex: Female
  Weight: 59.41 kg

DRUGS (3)
  1. BOTOX [Suspect]
     Active Substance: ONABOTULINUMTOXINA
     Dosage: 8.75 UNITS, SINGLE
     Route: 030
     Dates: start: 20151110, end: 20151110
  2. BOTOX [Suspect]
     Active Substance: ONABOTULINUMTOXINA
     Dosage: 8.75 UNITS, SINGLE
     Route: 030
     Dates: start: 20150811, end: 20150811
  3. BOTOX [Suspect]
     Active Substance: ONABOTULINUMTOXINA
     Indication: FACIAL PARALYSIS
     Dosage: 5 UNITS, SINGLE
     Route: 030
     Dates: start: 20150210, end: 20150210

REACTIONS (3)
  - Infection [Recovered/Resolved]
  - Off label use [Unknown]
  - Wrist surgery [Recovered/Resolved]

NARRATIVE: CASE EVENT DATE: 2015
